FAERS Safety Report 23728965 (Version 1)
Quarter: 2024Q2

REPORT INFORMATION
  Report Type: Report from Study
  Country: GB (occurrence: GB)
  Receive Date: 20240410
  Receipt Date: 20240410
  Transmission Date: 20240716
  Serious: Yes (Other)
  Sender: FDA-Public Use
  Company Number: GB-CELGENE-GBR-20171103835

PATIENT
  Age: 70 Year
  Sex: Female

DRUGS (21)
  1. DEXAMETHASONE [Suspect]
     Active Substance: DEXAMETHASONE
     Indication: Plasma cell myeloma refractory
     Dosage: FREQUENCY TEXT: DAYS 1,8,15 +22 40 MILLIGRAM;
     Route: 050
     Dates: start: 20170525
  2. DEXAMETHASONE [Suspect]
     Active Substance: DEXAMETHASONE
     Indication: Plasma cell myeloma refractory
     Dosage: FREQUENCY TEXT: DAYS 1,8,15 +22, 40 MILLIGRAM;
     Route: 050
     Dates: start: 20170608
  3. DEXAMETHASONE [Suspect]
     Active Substance: DEXAMETHASONE
     Indication: Plasma cell myeloma refractory
     Dosage: FREQUENCY TEXT: DAYS 1,8,15 +22, 40 MILLIGRAM;
     Route: 050
     Dates: start: 20170518
  4. DEXAMETHASONE [Suspect]
     Active Substance: DEXAMETHASONE
     Indication: Plasma cell myeloma refractory
     Dosage: FREQUENCY TEXT: DAYS 1,8,15 +22, 40 MILLIGRAM;
     Route: 050
     Dates: start: 20170601
  5. DEXAMETHASONE [Suspect]
     Active Substance: DEXAMETHASONE
     Indication: Plasma cell myeloma refractory
     Dosage: FREQUENCY TEXT: DAYS 1,8,15 +22, 40 MILLIGRAM;
     Route: 050
     Dates: start: 20170727
  6. DEXAMETHASONE [Suspect]
     Active Substance: DEXAMETHASONE
     Indication: Plasma cell myeloma refractory
     Dosage: FREQUENCY TEXT: DAYS 1,8,15 +22, 40 MILLIGRAM;
     Route: 050
     Dates: start: 20170615
  7. DEXAMETHASONE [Suspect]
     Active Substance: DEXAMETHASONE
     Indication: Plasma cell myeloma refractory
     Dosage: FREQUENCY TEXT: DAYS 1,8,15 +22, 40 MILLIGRAM;
     Route: 050
     Dates: start: 20170831
  8. DEXAMETHASONE [Suspect]
     Active Substance: DEXAMETHASONE
     Indication: Plasma cell myeloma refractory
     Dosage: FREQUENCY TEXT: DAYS 1,8,15 +22, 40 MILLIGRAM;
     Route: 050
     Dates: start: 20170720
  9. DEXAMETHASONE [Suspect]
     Active Substance: DEXAMETHASONE
     Indication: Plasma cell myeloma refractory
     Dosage: FREQUENCY TEXT: DAYS 1,8,15 +22, 40 MILLIGRAM;
     Route: 050
     Dates: start: 20170817
  10. DEXAMETHASONE [Suspect]
     Active Substance: DEXAMETHASONE
     Indication: Plasma cell myeloma refractory
     Dosage: FREQUENCY TEXT: DAYS 1,8,15 +22, 40 MILLIGRAM;
     Route: 050
     Dates: start: 20170810
  11. DEXAMETHASONE [Suspect]
     Active Substance: DEXAMETHASONE
     Indication: Plasma cell myeloma refractory
     Dosage: FREQUENCY TEXT: DAYS 1,8,15 +22, 40 MILLIGRAM;
     Route: 050
     Dates: start: 20170803
  12. DEXAMETHASONE [Suspect]
     Active Substance: DEXAMETHASONE
     Indication: Plasma cell myeloma refractory
     Dosage: FREQUENCY TEXT: DAYS 1,8,15 +22, 40 MILLIGRAM;
     Route: 050
     Dates: start: 20170621
  13. DEXAMETHASONE [Suspect]
     Active Substance: DEXAMETHASONE
     Indication: Plasma cell myeloma refractory
     Dosage: FREQUENCY TEXT: DAYS 1,8,15 +22, 40 MILLIGRAM;
     Route: 050
     Dates: start: 20170824
  14. DEXAMETHASONE [Suspect]
     Active Substance: DEXAMETHASONE
     Indication: Plasma cell myeloma refractory
     Dosage: FREQUENCY TEXT: DAYS 1,8,15 +22, 40 MILLIGRAM;
     Route: 050
     Dates: start: 20170629
  15. DEXAMETHASONE [Suspect]
     Active Substance: DEXAMETHASONE
     Indication: Plasma cell myeloma refractory
     Dosage: FREQUENCY TEXT: DAYS 1,8,15 +22, 40 MILLIGRAM;
     Route: 050
     Dates: start: 20170713
  16. DEXAMETHASONE [Suspect]
     Active Substance: DEXAMETHASONE
     Indication: Plasma cell myeloma refractory
     Dosage: FREQUENCY TEXT: DAYS 1,8,15 +22, 40 MILLIGRAM;
     Route: 050
     Dates: start: 20170705
  17. POMALIDOMIDE [Suspect]
     Active Substance: POMALIDOMIDE
     Indication: Plasma cell myeloma refractory
     Dosage: 4 MILLIGRAM, DURATION TEXT: CYCLE 2, DURATION: 20 DAYS
     Route: 050
     Dates: start: 20170615, end: 20170705
  18. POMALIDOMIDE [Suspect]
     Active Substance: POMALIDOMIDE
     Indication: Plasma cell myeloma refractory
     Dosage: 4 MILLIGRAM, DURATION: 20 DAYS
     Route: 050
     Dates: start: 20170518, end: 20170607
  19. POMALIDOMIDE [Suspect]
     Active Substance: POMALIDOMIDE
     Indication: Plasma cell myeloma refractory
     Dosage: 4 MILLIGRAM, DURATION TEXT: CYCLE 2
     Route: 050
     Dates: start: 20170810, end: 20170830
  20. POMALIDOMIDE [Suspect]
     Active Substance: POMALIDOMIDE
     Indication: Plasma cell myeloma refractory
     Dosage: 4 MILLIGRAM, DURATION TEXT: CYCLE 2, DURATION: 20 DAYS
     Route: 050
     Dates: start: 20170713, end: 20170802
  21. FLUCLOXACILLIN [Concomitant]
     Active Substance: FLUCLOXACILLIN
     Indication: Cellulitis
     Dosage: FREQUENCY TEXT: NOT PROVIDED
     Route: 050

REACTIONS (3)
  - Leukopenia [Recovered/Resolved]
  - Fatigue [Not Recovered/Not Resolved]
  - Paranoia [Not Recovered/Not Resolved]

NARRATIVE: CASE EVENT DATE: 20170601
